FAERS Safety Report 13569115 (Version 1)
Quarter: 2017Q2

REPORT INFORMATION
  Report Type: Spontaneous
  Country: BR (occurrence: BR)
  Receive Date: 20170522
  Receipt Date: 20170522
  Transmission Date: 20170830
  Serious: Yes (Other)
  Sender: FDA-Public Use
  Company Number: BR-NOVOPROD-544735

PATIENT
  Age: 74 Year
  Sex: Male
  Weight: 52 kg

DRUGS (1)
  1. NOVOLIN N [Suspect]
     Active Substance: INSULIN HUMAN
     Indication: TYPE 1 DIABETES MELLITUS
     Dosage: 24 IU
     Route: 065

REACTIONS (3)
  - Leg amputation [Unknown]
  - Surgery [Unknown]
  - Skin discolouration [Unknown]

NARRATIVE: CASE EVENT DATE: 2008
